FAERS Safety Report 8519215-6 (Version None)
Quarter: 2012Q3

REPORT INFORMATION
  Report Type: 
  Country: None (occurrence: None)
  Receive Date: 20120718
  Receipt Date: 20120712
  Transmission Date: 20120928
  Serious: Yes (Hospitalization)
  Sender: FDA-Public Use
  Company Number: IT-JNJFOC-20120707035

PATIENT
  Sex: Female
  Weight: 51 kg

DRUGS (1)
  1. REMICADE [Suspect]
     Indication: COLITIS ULCERATIVE
     Route: 042

REACTIONS (4)
  - PYREXIA [None]
  - VOMITING [None]
  - DIARRHOEA [None]
  - ABDOMINAL PAIN [None]
